FAERS Safety Report 12098295 (Version 2)
Quarter: 2017Q2

REPORT INFORMATION
  Report Type: Spontaneous
  Country: US (occurrence: US)
  Receive Date: 20160222
  Receipt Date: 20170409
  Transmission Date: 20170829
  Serious: No
  Sender: FDA-Public Use
  Company Number: US-CELGENEUS-USA-2016023401

PATIENT
  Sex: Male

DRUGS (1)
  1. OTEZLA [Suspect]
     Active Substance: APREMILAST
     Indication: PSORIASIS
     Dosage: 60 MILLIGRAM
     Route: 048
     Dates: start: 20160112, end: 20160630

REACTIONS (5)
  - Arthralgia [Unknown]
  - Decreased appetite [Unknown]
  - Peripheral swelling [Unknown]
  - Nausea [Unknown]
  - Weight decreased [Unknown]
